FAERS Safety Report 10175088 (Version 1)
Quarter: 2014Q2

REPORT INFORMATION
  Report Type: Spontaneous
  Country: JP (occurrence: JP)
  Receive Date: 20140515
  Receipt Date: 20140515
  Transmission Date: 20141212
  Serious: Yes (Death, Other)
  Sender: FDA-Public Use
  Company Number: JP-WATSON-2014-10106

PATIENT
  Age: 69 Year
  Sex: Female

DRUGS (2)
  1. METHYLPREDNISOLONE (UNKNOWN) [Suspect]
     Indication: HEPATITIS FULMINANT
     Dosage: 1000 MG, DAILY
     Route: 065
  2. METHYLPREDNISOLONE (UNKNOWN) [Suspect]
     Indication: AUTOIMMUNE HEPATITIS

REACTIONS (4)
  - Diverticulitis intestinal haemorrhagic [Fatal]
  - Hepatic failure [Fatal]
  - Cytomegalovirus gastrointestinal infection [Recovering/Resolving]
  - Gastric ulcer haemorrhage [Recovering/Resolving]
